FAERS Safety Report 26131564 (Version 2)
Quarter: 2025Q4

REPORT INFORMATION
  Report Type: Spontaneous
  Country: US (occurrence: US)
  Receive Date: 20251208
  Receipt Date: 20251226
  Transmission Date: 20260118
  Serious: No
  Sender: FRESENIUS KABI
  Company Number: US-FreseniusKabi-FK202516369

PATIENT
  Sex: Female

DRUGS (1)
  1. TYENNE [Suspect]
     Active Substance: TOCILIZUMAB-AAZG
     Indication: Product used for unknown indication
     Dosage: INJECTION
     Dates: start: 202504

REACTIONS (3)
  - Injection site erythema [Unknown]
  - Rash erythematous [Unknown]
  - Hypersensitivity [Unknown]
